FAERS Safety Report 25057508 (Version 1)
Quarter: 2025Q1

REPORT INFORMATION
  Report Type: Spontaneous
  Country: US (occurrence: US)
  Receive Date: 20250310
  Receipt Date: 20250310
  Transmission Date: 20250408
  Serious: No
  Sender: CIPLA
  Company Number: US-CIPLA LTD.-2025US02587

PATIENT

DRUGS (1)
  1. ALBUTEROL [Suspect]
     Active Substance: ALBUTEROL
     Indication: Product used for unknown indication
     Dosage: 180 MICROGRAM, QID (2 PUFFS BY MOUTH EVERY 4 HOURS)

REACTIONS (2)
  - Drug dose omission by device [Unknown]
  - Device delivery system issue [Unknown]
